FAERS Safety Report 20447243 (Version 1)
Quarter: 2022Q1

REPORT INFORMATION
  Report Type: Report from Study
  Country: BR (occurrence: BR)
  Receive Date: 20220209
  Receipt Date: 20220209
  Transmission Date: 20220423
  Serious: Yes (Hospitalization)
  Sender: FDA-Public Use
  Company Number: BR-JNJFOC-20210907417

PATIENT
  Age: 38 Year
  Sex: Female

DRUGS (1)
  1. SIMPONI [Suspect]
     Active Substance: GOLIMUMAB
     Indication: Axial spondyloarthritis
     Route: 058
     Dates: start: 20210609

REACTIONS (3)
  - Osteomyelitis [Unknown]
  - Biopsy spinal cord [Unknown]
  - Axial spondyloarthritis [Unknown]

NARRATIVE: CASE EVENT DATE: 20210809
